FAERS Safety Report 23898508 (Version 1)
Quarter: 2024Q2

REPORT INFORMATION
  Report Type: Spontaneous
  Country: US (occurrence: US)
  Receive Date: 20240525
  Receipt Date: 20240525
  Transmission Date: 20240716
  Serious: Yes (Hospitalization)
  Sender: FDA-Public Use
  Company Number: US-NOVITIUMPHARMA-2024USNVP00904

PATIENT
  Age: 19 Year
  Sex: Male

DRUGS (6)
  1. PREDNISONE [Suspect]
     Active Substance: PREDNISONE
     Indication: Primary adrenal insufficiency
  2. FLUDROCORTISONE ACETATE [Suspect]
     Active Substance: FLUDROCORTISONE ACETATE
     Indication: Primary adrenal insufficiency
  3. HYDROCORTISONE [Concomitant]
     Active Substance: HYDROCORTISONE
  4. HYDROCORTISONE [Concomitant]
     Active Substance: HYDROCORTISONE
     Dosage: BEFORE THE BIKE
  5. HYDROCORTISONE [Concomitant]
     Active Substance: HYDROCORTISONE
     Dosage: BEFORE THE SWIM
  6. HYDROCORTISONE [Concomitant]
     Active Substance: HYDROCORTISONE
     Dosage: BEFORE THE RUN

REACTIONS (1)
  - Drug ineffective [Unknown]
